FAERS Safety Report 4933978-8 (Version None)
Quarter: 2006Q1

REPORT INFORMATION
  Report Type: 
  Country: None (occurrence: None)
  Receive Date: 20060307
  Receipt Date: 20060227
  Transmission Date: 20060701
  Serious: Yes (Other)
  Sender: FDA-Public Use
  Company Number: US-JNJFOC-20060206389

PATIENT
  Sex: Male
  Weight: 77.11 kg

DRUGS (1)
  1. DURAGESIC-100 [Suspect]
     Route: 062

REACTIONS (6)
  - ASTHENIA [None]
  - DEHYDRATION [None]
  - DIZZINESS [None]
  - EUPHORIC MOOD [None]
  - HYPOVENTILATION [None]
  - MIOSIS [None]
